FAERS Safety Report 9898424 (Version 2)
Quarter: 2014Q1

REPORT INFORMATION
  Report Type: Spontaneous
  Country: US (occurrence: US)
  Receive Date: 20140214
  Receipt Date: 20140324
  Transmission Date: 20141002
  Serious: Yes (Disabling)
  Sender: FDA-Public Use
  Company Number: US-PFIZER INC-2014039300

PATIENT
  Age: 49 Year
  Sex: Female
  Weight: 46.3 kg

DRUGS (8)
  1. PREMARIN [Suspect]
     Indication: HORMONE REPLACEMENT THERAPY
     Dosage: 0.6 MG, 1X/DAY
     Route: 048
     Dates: start: 2004
  2. PREMARIN [Suspect]
     Dosage: 0.3 MG, 1X/DAY
     Route: 048
  3. DICYCLOMINE [Concomitant]
     Indication: IRRITABLE BOWEL SYNDROME
     Dosage: UNK, 3X/DAY
  4. DILTIAZEM [Concomitant]
     Indication: HYPERTENSION
     Dosage: UNK
  5. LINZESS [Concomitant]
     Indication: IRRITABLE BOWEL SYNDROME
     Dosage: UNK, 1X/DAY
  6. LISINOPRIL [Concomitant]
     Indication: HYPERTENSION
     Dosage: UNK
  7. PROPAFENONE [Concomitant]
     Indication: ARRHYTHMIA
     Dosage: UNK, EVERY 8 HOURS
  8. XARELTO [Concomitant]
     Indication: ARRHYTHMIA
     Dosage: UNK, 1X/DAY

REACTIONS (4)
  - Arthritis [Not Recovered/Not Resolved]
  - Exostosis [Not Recovered/Not Resolved]
  - Osteoporosis [Not Recovered/Not Resolved]
  - Migraine [Unknown]
